FAERS Safety Report 9817075 (Version 1)
Quarter: 2014Q1

REPORT INFORMATION
  Report Type: Spontaneous
  Country: MX (occurrence: MX)
  Receive Date: 20140114
  Receipt Date: 20140114
  Transmission Date: 20141002
  Serious: Yes (Other)
  Sender: FDA-Public Use
  Company Number: PHHY2014MX003719

PATIENT
  Sex: Male
  Weight: 91 kg

DRUGS (14)
  1. EXELON PATCH [Suspect]
     Indication: DEMENTIA ALZHEIMER^S TYPE
     Dosage: 4.6 MG (5 CM2) DAILY
     Route: 062
     Dates: start: 201301
  2. RITALIN [Suspect]
     Indication: DEPRESSION
     Dosage: 2 DF, 1 IN THE MORNING AND 1 IN THE AFTERNOON
     Route: 048
     Dates: start: 2009
  3. CHLORTALIDONE [Concomitant]
     Indication: HYPERTENSION
     Dosage: 0.5 DF, DAILY IN THE MORNING
     Route: 048
     Dates: start: 2012
  4. EBIXA [Concomitant]
     Indication: DEPRESSION
     Dosage: 1 DF, DAILY IN THE MORGNING
     Route: 048
     Dates: start: 2012
  5. SOMAZINA [Concomitant]
     Indication: ISCHAEMIC HEART DISEASE PROPHYLAXIS
     Dosage: 1 DF, DAILY IN THE MORGNING
     Route: 048
     Dates: start: 201201
  6. CONTUMAX [Concomitant]
     Indication: CONSTIPATION
     Dosage: 1 DF, QW
     Route: 048
     Dates: start: 201207
  7. SHOT B [Concomitant]
     Indication: MEDICAL DIET
     Dosage: 1 DF, DAILY IN THE MORGNING
     Route: 048
     Dates: start: 201201
  8. CLONAZEPAM [Concomitant]
     Indication: INSOMNIA
     Dosage: 1 DF, DAILY
     Route: 048
     Dates: start: 201201
  9. OLANZAPINE [Concomitant]
     Indication: INSOMNIA
     Dosage: 0.5 DF, DAILY AT NIGHT
     Route: 048
     Dates: start: 201201
  10. LEVOMEPROMAZINE [Concomitant]
     Indication: INSOMNIA
     Dosage: 0.25 DF, DAILY AT NIGHT
     Route: 048
     Dates: start: 201201
  11. ACETYLSALICYLIC ACID [Concomitant]
     Indication: ISCHAEMIC HEART DISEASE PROPHYLAXIS
     Dosage: 0.5 DF, DAILY IN THE AFTERNOON
     Route: 048
     Dates: start: 2009
  12. XALATAN [Concomitant]
     Indication: GLAUCOMA
     Dosage: 1 DRP, IN EACH EYE, DAILY AT NIGHT
     Dates: start: 2007
  13. TIMOLOL [Concomitant]
     Indication: GLAUCOMA
     Dosage: 2 DRP, IN EACH EYE, EVERY 12 HOURS
     Dates: start: 2009
  14. PRAVASTATIN [Concomitant]
     Indication: BLOOD CHOLESTEROL ABNORMAL
     Dosage: 1 DF, DAILY AT NIGHT
     Route: 048
     Dates: start: 201310

REACTIONS (2)
  - Renal impairment [Not Recovered/Not Resolved]
  - Expired drug administered [Not Recovered/Not Resolved]
